FAERS Safety Report 18447647 (Version 1)
Quarter: 2020Q4

REPORT INFORMATION
  Report Type: Spontaneous
  Country: JP (occurrence: JP)
  Receive Date: 20201101
  Receipt Date: 20201101
  Transmission Date: 20210114
  Serious: Yes (Other)
  Sender: FDA-Public Use
  Company Number: JP-ROCHE-2704806

PATIENT
  Age: 55 Year
  Sex: Female

DRUGS (1)
  1. KADCYLA [Suspect]
     Active Substance: ADO-TRASTUZUMAB EMTANSINE
     Indication: BREAST CANCER
     Dosage: DOSAGE IS UNCERTAIN.
     Route: 041

REACTIONS (5)
  - Tumour lysis syndrome [Unknown]
  - Hyponatraemia [Unknown]
  - Blood calcium abnormal [Unknown]
  - Renal impairment [Unknown]
  - Hyperuricaemia [Unknown]
